FAERS Safety Report 6826186-7 (Version None)
Quarter: 2010Q3

REPORT INFORMATION
  Report Type: 
  Country: None (occurrence: None)
  Receive Date: 20100709
  Receipt Date: 20100625
  Transmission Date: 20110219
  Serious: Yes (Other)
  Sender: FDA-Public Use
  Company Number: BE-BAYER-201026326GPV

PATIENT
  Age: 49 Year
  Sex: Female

DRUGS (13)
  1. FLUDARABINE [Suspect]
     Indication: ACUTE MYELOID LEUKAEMIA
     Dosage: UNK
  2. CLOFARABINE [Suspect]
     Indication: ACUTE MYELOID LEUKAEMIA
  3. BUSULFAN [Suspect]
     Indication: ACUTE MYELOID LEUKAEMIA
  4. CYTARABINE [Concomitant]
     Indication: ACUTE MYELOID LEUKAEMIA
     Dates: start: 20100423, end: 20100429
  5. OMEPRAZOLE [Concomitant]
     Dosage: 20 1X
  6. XANAX [Concomitant]
     Dosage: 0.5 3X PER DAY
  7. ORGAMETRIL [Concomitant]
  8. NOXAFIL [Concomitant]
     Dosage: TOTAL DAILY DOSE: 15 ML
  9. PURINETHOL [Concomitant]
     Dosage: 2 PER DAY
  10. HYDREA [Concomitant]
     Dosage: 4 PER DAY
  11. ZOLPIDEM [Concomitant]
  12. SYNGEL [Concomitant]
     Dosage: 4 MEASURES PER DAY
  13. MOTILIUM [Concomitant]

REACTIONS (6)
  - CHOLESTASIS [None]
  - ENTEROBACTER BACTERAEMIA [None]
  - ENTEROCOCCAL SEPSIS [None]
  - GUILLAIN-BARRE SYNDROME [None]
  - HYPERBILIRUBINAEMIA [None]
  - TOXIC ENCEPHALOPATHY [None]
